FAERS Safety Report 8399936-9 (Version None)
Quarter: 2012Q2

REPORT INFORMATION
  Report Type: 
  Country: None (occurrence: None)
  Receive Date: 20120531
  Receipt Date: 20120521
  Transmission Date: 20120825
  Serious: Yes (Hospitalization)
  Sender: FDA-Public Use
  Company Number: IT-BAXTER-2012BAX006356

PATIENT
  Sex: Female
  Weight: 25.5 kg

DRUGS (15)
  1. BEVACIZUMAB [Suspect]
     Indication: RHABDOMYOSARCOMA
     Route: 042
     Dates: start: 20120313
  2. VINCRISTINE [Suspect]
     Indication: RHABDOMYOSARCOMA
     Route: 042
     Dates: start: 20120313
  3. DACTINOMYCIN [Suspect]
     Route: 042
     Dates: start: 20120404
  4. COTRIM [Concomitant]
     Dosage: 1-2 CAPS
     Route: 065
     Dates: start: 20111231
  5. ACETAMINOPHEN [Concomitant]
     Route: 065
     Dates: start: 20120324, end: 20120326
  6. BEVACIZUMAB [Suspect]
     Route: 042
     Dates: start: 20120404
  7. MYCOSTATIN [Concomitant]
     Route: 065
     Dates: start: 20120322, end: 20120331
  8. MESNA [Suspect]
     Indication: RHABDOMYOSARCOMA
     Route: 042
     Dates: start: 20120313
  9. VINCRISTINE [Suspect]
     Route: 042
     Dates: start: 20120404
  10. DACTINOMYCIN [Suspect]
     Indication: RHABDOMYOSARCOMA
     Route: 042
     Dates: start: 20120313
  11. IFOSFAMIDE [Suspect]
     Indication: RHABDOMYOSARCOMA
     Route: 042
     Dates: start: 20120313
  12. BACTRIM [Concomitant]
     Dosage: TOTAL DAILY DOSE 1/2 CPS
     Route: 065
     Dates: start: 20111231
  13. IFOSFAMIDE [Suspect]
     Route: 042
     Dates: start: 20120404
  14. MESNA [Suspect]
     Dates: start: 20120404
  15. DOXORUBICIN HCL [Suspect]
     Indication: RHABDOMYOSARCOMA
     Route: 042
     Dates: start: 20120313

REACTIONS (1)
  - FEBRILE NEUTROPENIA [None]
